FAERS Safety Report 8375733-5 (Version None)
Quarter: 2012Q2

REPORT INFORMATION
  Report Type: 
  Country: None (occurrence: None)
  Receive Date: 20120518
  Receipt Date: 20120518
  Transmission Date: 20120825
  Serious: No
  Sender: FDA-Public Use
  Company Number: None

PATIENT
  Age: 77 Year
  Sex: Male
  Weight: 104.3 kg

DRUGS (2)
  1. LISINOPRIL [Suspect]
     Dosage: 2.5MG EVERY DAY PO
     Route: 048
     Dates: start: 20110921, end: 20120419
  2. NAPROXEN [Suspect]
     Dosage: 500 MG BID PO
     Route: 048
     Dates: start: 20110921

REACTIONS (2)
  - HYPERKALAEMIA [None]
  - RENAL FAILURE ACUTE [None]
